FAERS Safety Report 22252765 (Version 1)
Quarter: 2023Q2

REPORT INFORMATION
  Report Type: Report from Study
  Country: BE (occurrence: BE)
  Receive Date: 20230426
  Receipt Date: 20230426
  Transmission Date: 20230722
  Serious: Yes (Hospitalization, Other)
  Sender: FDA-Public Use
  Company Number: BE-ABBVIE-4742070

PATIENT
  Sex: Female

DRUGS (9)
  1. CARBIDOPA\LEVODOPA [Suspect]
     Active Substance: CARBIDOPA\LEVODOPA
     Indication: Parkinson^s disease
     Route: 050
     Dates: start: 20230118, end: 20230119
  2. CARBIDOPA\LEVODOPA [Suspect]
     Active Substance: CARBIDOPA\LEVODOPA
     Dosage: MD: 9.0 ML, CD: 2.4 ML/H, ED: 1.5 ML?DURATION- 16 HOURS
     Dates: start: 20230306
  3. CARBIDOPA\LEVODOPA [Suspect]
     Active Substance: CARBIDOPA\LEVODOPA
     Dosage: MD: 9.0 ML, CD: 2.8 ML/H, ED: 1.5 ML?DURATION- 16 HOURS
     Route: 050
     Dates: start: 20230209, end: 20230224
  4. CARBIDOPA\LEVODOPA [Suspect]
     Active Substance: CARBIDOPA\LEVODOPA
     Dosage: MD: 9.0 ML, CD: 2.6 ML/H, ED: 1.5 ML?DURATION- 16 HOURS
     Route: 050
     Dates: start: 20230224, end: 20230306
  5. CARBIDOPA\LEVODOPA [Suspect]
     Active Substance: CARBIDOPA\LEVODOPA
     Dosage: MD: 9.0 ML, CD: 3.1 ML/H, ED: 1.5 ML?DURATION- 16 HOURS
     Route: 050
     Dates: start: 20230206, end: 20230209
  6. CARBIDOPA\LEVODOPA [Suspect]
     Active Substance: CARBIDOPA\LEVODOPA
     Dosage: MD: 6.0 ML, CD: 3.3 ML/H, ED: 1.5 ML?DURATION- 16 HOURS
     Route: 050
     Dates: start: 20221027, end: 20221102
  7. CARBIDOPA\LEVODOPA [Suspect]
     Active Substance: CARBIDOPA\LEVODOPA
     Dosage: MD: 6.0 ML, CD: 3.3 ML/H, ED: 1.5 ML?DURATION- 16 HOURS
     Route: 050
     Dates: start: 20221102, end: 20230118
  8. CARBIDOPA\LEVODOPA [Suspect]
     Active Substance: CARBIDOPA\LEVODOPA
     Dosage: MD: 6.0 ML, CD: 3.3 ML/H, ED: 1.5 ML?DURATION- 16 HOURS
     Route: 050
     Dates: start: 20230119, end: 20230206
  9. CARBIDOPA\LEVODOPA [Suspect]
     Active Substance: CARBIDOPA\LEVODOPA
     Dosage: MD: 4.0 ML, CD: 3.3 ML/H, ED: 1.5 ML?DURATION- 16 HOURS
     Route: 050
     Dates: start: 20221026, end: 20221027

REACTIONS (2)
  - Spinal compression fracture [Unknown]
  - Fall [Unknown]
